FAERS Safety Report 6709750-5 (Version None)
Quarter: 2010Q2

REPORT INFORMATION
  Report Type: 
  Country: None (occurrence: None)
  Receive Date: 20100504
  Receipt Date: 20100504
  Transmission Date: 20101027
  Serious: Yes (Hospitalization, Other)
  Sender: FDA-Public Use
  Company Number: US-ABBOTT-08P-163-0492129-00

PATIENT
  Sex: Female
  Weight: 83.99 kg

DRUGS (5)
  1. HUMIRA [Suspect]
     Indication: CROHN'S DISEASE
     Route: 058
     Dates: start: 20071115, end: 20091101
  2. IMURAN [Concomitant]
     Indication: CROHN'S DISEASE
     Dates: start: 20081209
  3. TRAMADOL [Concomitant]
     Indication: PAIN
     Dates: start: 20081209
  4. INSULIN [Concomitant]
     Indication: BLOOD GLUCOSE ABNORMAL
  5. EPIPEN [Concomitant]
     Indication: HYPERSENSITIVITY

REACTIONS (5)
  - ABDOMINAL PAIN UPPER [None]
  - CROHN'S DISEASE [None]
  - DIABETES MELLITUS [None]
  - INTESTINAL RESECTION [None]
  - SMALL INTESTINAL OBSTRUCTION [None]
